FAERS Safety Report 4562114-5 (Version None)
Quarter: 2005Q1

REPORT INFORMATION
  Report Type: 
  Country: None (occurrence: None)
  Receive Date: 20050121
  Receipt Date: 20050105
  Transmission Date: 20050727
  Serious: Yes (Death)
  Sender: FDA-Public Use
  Company Number: 200301474

PATIENT
  Age: 43 Year
  Sex: Female
  Weight: 58.9676 kg

DRUGS (10)
  1. BOTOX [Suspect]
     Indication: PAIN
     Dosage: 100 UNITS PRN IM
     Route: 030
     Dates: start: 20011101, end: 20030124
  2. LIDOCAINE [Suspect]
     Indication: ANAESTHESIA
     Dates: start: 20011101, end: 20030124
  3. METHADONE HCL [Concomitant]
  4. ROBAXIN [Concomitant]
  5. OXYCODONE HCL [Concomitant]
  6. ARTEX [Concomitant]
  7. SINGULAIR [Concomitant]
  8. AZMACORT [Concomitant]
  9. ALBUTEROL [Concomitant]
  10. ASPIRIN [Concomitant]

REACTIONS (21)
  - ACCIDENTAL DEATH [None]
  - ANAPHYLACTIC REACTION [None]
  - ANAPHYLACTIC SHOCK [None]
  - ANXIETY [None]
  - CARDIAC ARREST [None]
  - CEREBRAL ISCHAEMIA [None]
  - DEMYELINATION [None]
  - DIZZINESS [None]
  - EXCORIATION [None]
  - GRAND MAL CONVULSION [None]
  - HEMIPARESIS [None]
  - LOSS OF CONSCIOUSNESS [None]
  - MULTIPLE SCLEROSIS [None]
  - MUSCLE RIGIDITY [None]
  - PULMONARY ALVEOLAR HAEMORRHAGE [None]
  - PULMONARY OEDEMA [None]
  - RESPIRATORY ARREST [None]
  - SOFT TISSUE HAEMORRHAGE [None]
  - SYNCOPE VASOVAGAL [None]
  - TRYPTASE INCREASED [None]
  - VENTRICULAR FIBRILLATION [None]
